FAERS Safety Report 7676207-7 (Version None)
Quarter: 2011Q3

REPORT INFORMATION
  Report Type: 
  Country: None (occurrence: None)
  Receive Date: 20110805
  Receipt Date: 20110726
  Transmission Date: 20111222
  Serious: Yes (Hospitalization, Other)
  Sender: FDA-Public Use
  Company Number: DKLU1069054

PATIENT
  Age: 3 Year
  Sex: Female

DRUGS (7)
  1. SABRIL [Suspect]
     Indication: CONVULSION
     Dosage: 350 MG MILLIGRAM(S), 2 IN 1 D, ORAL, 1000 MG MILLIGRAM(S), 2 IN 1 D, ORAL
     Route: 048
     Dates: start: 20110401
  2. SABRIL [Suspect]
     Indication: INFANTILE SPASMS
     Dosage: 350 MG MILLIGRAM(S), 2 IN 1 D, ORAL, 1000 MG MILLIGRAM(S), 2 IN 1 D, ORAL
     Route: 048
     Dates: start: 20110401
  3. SABRIL [Suspect]
     Indication: CONVULSION
     Dosage: 350 MG MILLIGRAM(S), 2 IN 1 D, ORAL, 1000 MG MILLIGRAM(S), 2 IN 1 D, ORAL
     Route: 048
     Dates: start: 20110101, end: 20110101
  4. SABRIL [Suspect]
     Indication: INFANTILE SPASMS
     Dosage: 350 MG MILLIGRAM(S), 2 IN 1 D, ORAL, 1000 MG MILLIGRAM(S), 2 IN 1 D, ORAL
     Route: 048
     Dates: start: 20110101, end: 20110101
  5. SABRIL [Suspect]
     Indication: CONVULSION
     Dosage: 350 MG MILLIGRAM(S), 2 IN 1 D, ORAL, 1000 MG MILLIGRAM(S), 2 IN 1 D, ORAL
     Route: 048
     Dates: start: 20110101
  6. SABRIL [Suspect]
     Indication: INFANTILE SPASMS
     Dosage: 350 MG MILLIGRAM(S), 2 IN 1 D, ORAL, 1000 MG MILLIGRAM(S), 2 IN 1 D, ORAL
     Route: 048
     Dates: start: 20110101
  7. PHENOBARBITAL TAB [Concomitant]

REACTIONS (6)
  - DRUG DOSE OMISSION [None]
  - MALAISE [None]
  - CONVULSION [None]
  - DEHYDRATION [None]
  - INFECTION [None]
  - DIARRHOEA [None]
